FAERS Safety Report 17929307 (Version 1)
Quarter: 2020Q2

REPORT INFORMATION
  Report Type: Spontaneous
  Country: US (occurrence: US)
  Receive Date: 20200623
  Receipt Date: 20200623
  Transmission Date: 20200714
  Serious: Yes (Hospitalization, Other)
  Sender: FDA-Public Use
  Company Number: US-CHEPLA-C20201833_02

PATIENT
  Age: 70 Year
  Sex: Female

DRUGS (2)
  1. FOSCARNET [Suspect]
     Active Substance: FOSCARNET
     Indication: CYTOMEGALOVIRUS INFECTION
     Dosage: EMPIRIC FOSCARNET 50 MG/KG IV DAILY
     Route: 042
  2. GANCICLOVIR GCV [Suspect]
     Active Substance: GANCICLOVIR
     Indication: CYTOMEGALOVIRUS INFECTION
     Dosage: 2.5 MG/KG IV DAILY
     Route: 042

REACTIONS (3)
  - Sepsis [Not Recovered/Not Resolved]
  - Supraventricular tachycardia [Recovering/Resolving]
  - Disseminated intravascular coagulation [Not Recovered/Not Resolved]
